FAERS Safety Report 9432879 (Version 1)
Quarter: 2013Q3

REPORT INFORMATION
  Report Type: Report from Study
  Country: BR (occurrence: BR)
  Receive Date: 20130731
  Receipt Date: 20130731
  Transmission Date: 20140515
  Serious: Yes (Other)
  Sender: FDA-Public Use
  Company Number: PHHY2013BR081715

PATIENT
  Sex: Male

DRUGS (7)
  1. RASILEZ [Suspect]
     Indication: BLOOD PRESSURE ABNORMAL
     Dosage: 1 DF (300 MG), A DAY
     Route: 048
  2. DIAMICRON [Concomitant]
  3. JANUVIA [Concomitant]
  4. ADDERA D3 [Concomitant]
  5. SIMVASTATIN [Concomitant]
  6. AAS [Concomitant]
  7. LANSOPRAZOLE [Concomitant]

REACTIONS (2)
  - Diabetes mellitus [Recovered/Resolved]
  - Pigmentation disorder [Recovered/Resolved]
